FAERS Safety Report 18188276 (Version 1)
Quarter: 2020Q3

REPORT INFORMATION
  Report Type: Report from Study
  Country: ES (occurrence: ES)
  Receive Date: 20200824
  Receipt Date: 20200824
  Transmission Date: 20201103
  Serious: Yes (Other)
  Sender: FDA-Public Use
  Company Number: ES-JNJFOC-20200820760

PATIENT

DRUGS (6)
  1. QUETIAPINE. [Suspect]
     Active Substance: QUETIAPINE
     Indication: AUTISM SPECTRUM DISORDER
     Route: 065
  2. OLANZAPINE. [Suspect]
     Active Substance: OLANZAPINE
     Indication: AUTISM SPECTRUM DISORDER
     Route: 065
  3. METHOTRIMEPRAZINE [Suspect]
     Active Substance: LEVOMEPROMAZINE
     Indication: AUTISM SPECTRUM DISORDER
     Route: 065
  4. TOPAMAX [Interacting]
     Active Substance: TOPIRAMATE
     Indication: PRODUCT USED FOR UNKNOWN INDICATION
     Route: 065
  5. RISPERDAL [Suspect]
     Active Substance: RISPERIDONE
     Indication: AUTISM SPECTRUM DISORDER
     Route: 065
  6. FLUVOXAMINE [Suspect]
     Active Substance: FLUVOXAMINE
     Indication: AUTISM SPECTRUM DISORDER
     Route: 065

REACTIONS (10)
  - Respiratory depression [Unknown]
  - Somnolence [Unknown]
  - Electrocardiogram QT prolonged [Unknown]
  - Confusional state [Unknown]
  - Ataxia [Unknown]
  - Extrapyramidal disorder [Unknown]
  - Asthenia [Unknown]
  - Potentiating drug interaction [Unknown]
  - Neuroleptic malignant syndrome [Unknown]
  - Serotonin syndrome [Unknown]
